FAERS Safety Report 4376401-7 (Version None)
Quarter: 2004Q2

REPORT INFORMATION
  Report Type: 
  Country: None (occurrence: None)
  Receive Date: 20040608
  Receipt Date: 20040607
  Transmission Date: 20050107
  Serious: Yes (Death, Other)
  Sender: FDA-Public Use
  Company Number: USA-2004-0013322

PATIENT
  Age: 56 Year
  Sex: Male

DRUGS (8)
  1. OXYCONTIN [Suspect]
  2. PERCOCET [Suspect]
  3. ALPRAZOLAM [Suspect]
  4. PAROXETINE HCL [Suspect]
  5. LIDOCAINE [Suspect]
  6. CARISOPRODOL (CARISOPRODOL) [Concomitant]
  7. CEFTIN [Concomitant]
  8. METOPROLOL (METOPROLOL) [Concomitant]

REACTIONS (5)
  - ACCIDENTAL EXPOSURE [None]
  - CORONARY ARTERY DISEASE [None]
  - DRUG TOXICITY [None]
  - MYOCARDIAL INFARCTION [None]
  - POLYSUBSTANCE ABUSE [None]
